FAERS Safety Report 7720051-9 (Version None)
Quarter: 2011Q3

REPORT INFORMATION
  Report Type: 
  Country: None (occurrence: None)
  Receive Date: 20110831
  Receipt Date: 20110823
  Transmission Date: 20111222
  Serious: Yes (Other)
  Sender: FDA-Public Use
  Company Number: US-SP-2011-07512

PATIENT
  Age: 90 Year
  Sex: Female

DRUGS (6)
  1. PROCID [Concomitant]
  2. NEPROSOL [Concomitant]
  3. INTERFERON [Suspect]
     Route: 043
     Dates: start: 20110615, end: 20110615
  4. LISIMOPRIL [Concomitant]
  5. THERACYS [Suspect]
     Indication: BLADDER CANCER
     Route: 043
     Dates: start: 20110615, end: 20110615
  6. HYDROCHLOROTHIAZIDE [Concomitant]

REACTIONS (4)
  - BLADDER PAIN [None]
  - BODY TEMPERATURE INCREASED [None]
  - INCORRECT DOSE ADMINISTERED [None]
  - URINE ABNORMALITY [None]
